FAERS Safety Report 21183622 (Version 1)
Quarter: 2022Q3

REPORT INFORMATION
  Report Type: Spontaneous
  Country: GB (occurrence: GB)
  Receive Date: 20220808
  Receipt Date: 20220808
  Transmission Date: 20221027
  Serious: Yes (Death, Life-Threatening, Hospitalization, Disabling)
  Sender: FDA-Public Use
  Company Number: GB-MHRA-MED-202207231014245900-CSBMD

PATIENT
  Age: 24 Year
  Sex: Male

DRUGS (1)
  1. PREGABALIN [Suspect]
     Active Substance: PREGABALIN
     Indication: Adverse drug reaction
     Dosage: UNK
     Route: 065
     Dates: start: 20180301

REACTIONS (2)
  - Dependence [Fatal]
  - Medication error [Unknown]

NARRATIVE: CASE EVENT DATE: 20180301
